FAERS Safety Report 4504822-8 (Version None)
Quarter: 2004Q3

REPORT INFORMATION
  Report Type: 
  Country: None (occurrence: None)
  Receive Date: 20040927
  Receipt Date: 20040708
  Transmission Date: 20050211
  Serious: No
  Sender: FDA-Public Use
  Company Number: USA040772119

PATIENT
  Age: 50 Year
  Sex: Male

DRUGS (1)
  1. STRATTERA [Suspect]
     Indication: ATTENTION DEFICIT/HYPERACTIVITY DISORDER
     Dosage: 30 MG/1 DAY
     Dates: start: 20040625

REACTIONS (7)
  - ABDOMINAL DISTENSION [None]
  - BLADDER PAIN [None]
  - BLOOD PRESSURE INCREASED [None]
  - CHILLS [None]
  - DIZZINESS [None]
  - FEELING COLD [None]
  - URINARY HESITATION [None]
